FAERS Safety Report 17619013 (Version 1)
Quarter: 2020Q2

REPORT INFORMATION
  Report Type: Report from Study
  Country: GT (occurrence: GT)
  Receive Date: 20200403
  Receipt Date: 20200403
  Transmission Date: 20200713
  Serious: Yes (Death)
  Sender: FDA-Public Use
  Company Number: GT-EMD SERONO-9080219

PATIENT
  Age: 10 Year
  Sex: Female

DRUGS (2)
  1. DESMOPRESSIN [Concomitant]
     Active Substance: DESMOPRESSIN
     Indication: DIABETES MELLITUS
     Route: 060
  2. SAIZEN [Suspect]
     Active Substance: SOMATROPIN
     Indication: GROWTH HORMONE DEFICIENCY
     Route: 058
     Dates: start: 20190204

REACTIONS (2)
  - Pneumonia [Fatal]
  - Abscess neck [Unknown]

NARRATIVE: CASE EVENT DATE: 20190314
